FAERS Safety Report 8282065-2 (Version None)
Quarter: 2012Q2

REPORT INFORMATION
  Report Type: 
  Country: None (occurrence: None)
  Receive Date: 20120413
  Receipt Date: 20120405
  Transmission Date: 20120825
  Serious: Yes (Hospitalization)
  Sender: FDA-Public Use
  Company Number: US-AMGEN-USASP2012021688

PATIENT
  Age: 24 Year
  Sex: Female

DRUGS (1)
  1. ENBREL [Suspect]
     Indication: PSORIASIS
     Dosage: 50 MG, QWK
     Route: 058
     Dates: start: 20050412, end: 20100101

REACTIONS (6)
  - FURUNCLE [None]
  - PSORIASIS [None]
  - URINARY TRACT INFECTION [None]
  - PAIN IN EXTREMITY [None]
  - CYST [None]
  - MATERNAL EXPOSURE DURING PREGNANCY [None]
